FAERS Safety Report 18903825 (Version 1)
Quarter: 2021Q1

REPORT INFORMATION
  Report Type: Spontaneous
  Country: US (occurrence: US)
  Receive Date: 20210217
  Receipt Date: 20210217
  Transmission Date: 20210420
  Serious: No
  Sender: FDA-Public Use
  Company Number: None

PATIENT

DRUGS (1)
  1. BAMLANIVIMAB. [Suspect]
     Active Substance: BAMLANIVIMAB
     Dates: start: 20210216, end: 20210216

REACTIONS (3)
  - Chest pain [None]
  - Infusion related reaction [None]
  - Arthralgia [None]

NARRATIVE: CASE EVENT DATE: 20210216
